FAERS Safety Report 13401552 (Version 1)
Quarter: 2017Q2

REPORT INFORMATION
  Report Type: Report from Study
  Country: None (occurrence: NL)
  Receive Date: 20170404
  Receipt Date: 20170404
  Transmission Date: 20170830
  Serious: Yes (Other)
  Sender: FDA-Public Use
  Company Number: NL-ABBVIE-17K-114-1928489-00

PATIENT
  Sex: Female

DRUGS (1)
  1. DUODOPA [Suspect]
     Active Substance: CARBIDOPA\LEVODOPA
     Indication: PARKINSON^S DISEASE
     Dosage: MORNING DOSE:  7.1, CONTINUOUS DOSE: 3.4, EXTRA DOSE: 2.8
     Route: 050
     Dates: start: 20120711

REACTIONS (2)
  - Device physical property issue [Unknown]
  - Device dislocation [Recovered/Resolved]
